FAERS Safety Report 8045542-5 (Version None)
Quarter: 2012Q1

REPORT INFORMATION
  Report Type: 
  Country: None (occurrence: None)
  Receive Date: 20120113
  Receipt Date: 20120111
  Transmission Date: 20120608
  Serious: No
  Sender: FDA-Public Use
  Company Number: US-BAYER-2012-003751

PATIENT
  Age: 36 Year
  Sex: Female

DRUGS (9)
  1. FERROUS GLUCONATE [Concomitant]
     Dosage: 225 MG
  2. DIGESTIVE ENZYMES [Concomitant]
  3. AMANTADINE HCL [Concomitant]
     Dosage: 100 MG
  4. MULTIVITAMIN [Concomitant]
  5. EFFEXOR [Concomitant]
     Dosage: 25 MG
  6. COUMADIN [Concomitant]
     Dosage: 1 MG
  7. VITAMIN B COMPLEX CAP [Concomitant]
  8. BETASERON [Suspect]
     Indication: PRODUCT USED FOR UNKNOWN INDICATION
     Dosage: 0.3 MG
     Route: 058
  9. OMEPRAZOLE [Concomitant]
     Dosage: 20 MG

REACTIONS (2)
  - HYPOAESTHESIA ORAL [None]
  - PRURITUS [None]
